FAERS Safety Report 8176080-7 (Version None)
Quarter: 2012Q1

REPORT INFORMATION
  Report Type: 
  Country: None (occurrence: None)
  Receive Date: 20120301
  Receipt Date: 20120220
  Transmission Date: 20120608
  Serious: Yes (Other)
  Sender: FDA-Public Use
  Company Number: JP-BRISTOL-MYERS SQUIBB COMPANY-16423964

PATIENT
  Age: 5 Year
  Sex: Female

DRUGS (2)
  1. ETOPOSIDE [Suspect]
     Indication: GERM CELL CANCER
  2. CARBOPLATIN [Suspect]
     Indication: GERM CELL CANCER

REACTIONS (1)
  - HAEMANGIOMA [None]
